FAERS Safety Report 7539613-7 (Version None)
Quarter: 2011Q2

REPORT INFORMATION
  Report Type: 
  Country: None (occurrence: None)
  Receive Date: 20110609
  Receipt Date: 20110609
  Transmission Date: 20111010
  Serious: Yes (Hospitalization)
  Sender: FDA-Public Use
  Company Number: None

PATIENT
  Sex: Female
  Weight: 14.5 kg

DRUGS (15)
  1. CYCLOPHOSPHAMIDE [Suspect]
     Dosage: 3600 MG
  2. TOBRAMYCIN [Concomitant]
  3. URSODIOL [Concomitant]
  4. THIOTEPA [Suspect]
     Dosage: 540 MG
  5. MEROPENEM [Concomitant]
  6. VANCOMYCIN [Concomitant]
  7. BUMETANIDE [Concomitant]
  8. PIPERACILLIN AND TAZOBACTAM [Concomitant]
  9. ANTI-FUNGALS [Concomitant]
  10. ACYCLOVIR [Concomitant]
  11. ONDANSETRON [Concomitant]
  12. PANTOPRAZOLE [Concomitant]
  13. SPIRONOLACTONE [Concomitant]
  14. MORPHINE [Concomitant]
  15. TPN/INTRALIPIDS [Concomitant]

REACTIONS (28)
  - COAGULOPATHY [None]
  - HAEMOLYSIS [None]
  - PYREXIA [None]
  - ASCITES [None]
  - BLOOD POTASSIUM INCREASED [None]
  - SWELLING [None]
  - BLOOD URINE PRESENT [None]
  - FLUID OVERLOAD [None]
  - BLOOD CREATININE INCREASED [None]
  - GALLBLADDER DISORDER [None]
  - NEPHROPATHY [None]
  - PULMONARY OEDEMA [None]
  - RESPIRATORY DISTRESS [None]
  - THROMBOTIC MICROANGIOPATHY [None]
  - MICROANGIOPATHY [None]
  - HEPATOMEGALY [None]
  - HEPATIC LESION [None]
  - ATELECTASIS [None]
  - RESPIRATORY FAILURE [None]
  - URINE OUTPUT DECREASED [None]
  - ACUTE HEPATIC FAILURE [None]
  - HYPERTENSION [None]
  - SPLENOMEGALY [None]
  - HEPATOCELLULAR INJURY [None]
  - RED BLOOD CELL SCHISTOCYTES PRESENT [None]
  - OXYGEN SATURATION DECREASED [None]
  - CONTINUOUS HAEMODIAFILTRATION [None]
  - PERICARDIAL EFFUSION [None]
